FAERS Safety Report 6691649-4 (Version None)
Quarter: 2010Q2

REPORT INFORMATION
  Report Type: 
  Country: None (occurrence: None)
  Receive Date: 20100422
  Receipt Date: 20090821
  Transmission Date: 20101027
  Serious: No
  Sender: FDA-Public Use
  Company Number: US-ASTRAZENECA-2009SE09240

PATIENT
  Age: 84 Year
  Sex: Female
  Weight: 50.8 kg

DRUGS (2)
  1. TOPROL-XL [Suspect]
     Route: 048
     Dates: start: 19920101
  2. METOPROLOL SUCCINATE [Suspect]
     Dates: start: 20070924, end: 20071001

REACTIONS (5)
  - BURNING SENSATION [None]
  - DIZZINESS [None]
  - EYE DISORDER [None]
  - HEADACHE [None]
  - SOMNOLENCE [None]
